FAERS Safety Report 24618454 (Version 4)
Quarter: 2025Q1

REPORT INFORMATION
  Report Type: Report from Study
  Country: US (occurrence: US)
  Receive Date: 20241114
  Receipt Date: 20250121
  Transmission Date: 20250409
  Serious: Yes (Hospitalization)
  Sender: JOHNSON AND JOHNSON
  Company Number: US-JNJFOC-20241110044

PATIENT
  Age: 76 Year
  Sex: Female

DRUGS (2)
  1. MACITENTAN\TADALAFIL [Suspect]
     Active Substance: MACITENTAN\TADALAFIL
     Indication: Product used for unknown indication
     Dosage: 10/20 MG
     Route: 048
     Dates: start: 202410, end: 202410
  2. OPSUMIT [Suspect]
     Active Substance: MACITENTAN
     Indication: Product used for unknown indication
     Route: 048

REACTIONS (3)
  - Hypotension [Recovering/Resolving]
  - Chest pain [Unknown]
  - Pulse absent [Unknown]
